FAERS Safety Report 6018557-6 (Version None)
Quarter: 2008Q4

REPORT INFORMATION
  Report Type: 
  Country: None (occurrence: None)
  Receive Date: 20081223
  Receipt Date: 20081209
  Transmission Date: 20090506
  Serious: No
  Sender: FDA-Public Use
  Company Number: US-B.I. PHARMACEUTICALS,INC./RIDGEFIELD-2008-BP-17169BP

PATIENT
  Sex: Female

DRUGS (6)
  1. SPIRIVA [Suspect]
     Indication: CHRONIC OBSTRUCTIVE PULMONARY DISEASE
     Dosage: 18MCG
     Dates: start: 20050601
  2. SPIRIVA [Suspect]
     Indication: EMPHYSEMA
  3. ATROVENT [Concomitant]
     Indication: DYSPNOEA
     Dosage: 12PUF
  4. XOPENOX NEBULIZER [Concomitant]
     Indication: DYSPNOEA
  5. XOPONOX INHALER [Concomitant]
     Indication: DYSPNOEA
     Dosage: 4PUF
  6. TRAZODONE [Concomitant]
     Dosage: 100MG

REACTIONS (3)
  - GINGIVAL PAIN [None]
  - HYPERSENSITIVITY [None]
  - STOMATITIS [None]
